FAERS Safety Report 4331589-9 (Version None)
Quarter: 2004Q2

REPORT INFORMATION
  Report Type: 
  Country: None (occurrence: None)
  Receive Date: 20040405
  Receipt Date: 20040209
  Transmission Date: 20050107
  Serious: Yes (Hospitalization, Disabling, Other)
  Sender: FDA-Public Use
  Company Number: US-MERCK-0402USA00725

PATIENT
  Age: 77 Year
  Sex: Female
  Weight: 50 kg

DRUGS (7)
  1. FOSAMAX [Concomitant]
     Route: 065
  2. ASPIRIN [Concomitant]
     Route: 048
  3. ATENOLOL [Concomitant]
     Route: 065
  4. BUSPAR [Concomitant]
     Route: 065
  5. SYNTHROID [Concomitant]
     Route: 065
  6. ACCUPRIL [Concomitant]
     Route: 065
  7. VIOXX [Suspect]
     Indication: ARTHRITIS
     Route: 048
     Dates: start: 20030201, end: 20031101

REACTIONS (8)
  - ANAEMIA [None]
  - FEELING ABNORMAL [None]
  - GASTRIC ULCER [None]
  - HELICOBACTER GASTRITIS [None]
  - NAUSEA [None]
  - RECTAL HAEMORRHAGE [None]
  - VOMITING [None]
  - WEIGHT DECREASED [None]
